FAERS Safety Report 18738429 (Version 2)
Quarter: 2021Q1

REPORT INFORMATION
  Report Type: Spontaneous
  Country: US (occurrence: US)
  Receive Date: 20210114
  Receipt Date: 20210210
  Transmission Date: 20210419
  Serious: No
  Sender: FDA-Public Use
  Company Number: US-ASTRAZENECA-2020SF69488

PATIENT
  Sex: Male
  Weight: 68 kg

DRUGS (1)
  1. BUDESONIDE AND FORMOTEROL AEROSOL [Suspect]
     Active Substance: BUDESONIDE\FORMOTEROL FUMARATE DIHYDRATE
     Indication: ADJUVANT THERAPY
     Dosage: 160?4.5 MCG, 2 PUFFS TWICE A DAY BUT HE TAKES IT AS NECESSARY
     Route: 055

REACTIONS (5)
  - Dyspnoea [Unknown]
  - Cough [Unknown]
  - Intentional device misuse [Unknown]
  - Device failure [Unknown]
  - Product dose omission issue [Unknown]
